FAERS Safety Report 7350692-2 (Version None)
Quarter: 2011Q1

REPORT INFORMATION
  Report Type: 
  Country: None (occurrence: None)
  Receive Date: 20110314
  Receipt Date: 20110303
  Transmission Date: 20110831
  Serious: Yes (Hospitalization)
  Sender: FDA-Public Use
  Company Number: US-ASTRAZENECA-2011SE11785

PATIENT
  Age: 70 Year
  Sex: Male
  Weight: 122.7 kg

DRUGS (8)
  1. CANGERLOR VS CLOPIDOGROL VS PLACEBO [Suspect]
     Indication: PERCUTANEOUS CORONARY INTERVENTION
     Dosage: 9.2 ML BOLUS
     Route: 042
     Dates: start: 20101220, end: 20101220
  2. LISINOPRIL [Suspect]
     Indication: HYPERTENSION
     Route: 048
     Dates: start: 20101222, end: 20101222
  3. CANGERLOR VS CLOPIDOGROL VS PLACEBO [Suspect]
     Dosage: 73.2 ML, HR
     Route: 042
     Dates: start: 20101220, end: 20101220
  4. CANGERLOR VS CLOPIDOGROL VS PLACEBO [Suspect]
     Dosage: 4 CAPSULES PRE PROCEDURE
     Route: 048
     Dates: start: 20101220, end: 20101220
  5. CANGERLOR VS CLOPIDOGROL VS PLACEBO [Suspect]
     Dosage: 4 POST-PROCEDURE CAPSULES
     Route: 048
     Dates: start: 20101220, end: 20101220
  6. HEPARIN [Concomitant]
  7. WARFARIN [Concomitant]
  8. FUROSEMIDE [Suspect]
     Indication: DIURETIC THERAPY
     Dosage: 40 MG Q12H,
     Route: 042
     Dates: start: 20101220, end: 20101220

REACTIONS (3)
  - RENAL FAILURE ACUTE [None]
  - NEPHROPATHY TOXIC [None]
  - HYPOTENSION [None]
